FAERS Safety Report 5139270-3 (Version None)
Quarter: 2006Q4

REPORT INFORMATION
  Report Type: 
  Country: None (occurrence: None)
  Receive Date: 20061023
  Receipt Date: 20061004
  Transmission Date: 20070319
  Serious: Yes (Other)
  Sender: FDA-Public Use
  Company Number: US200601001524

PATIENT
  Age: 36 Year
  Sex: Male
  Weight: 134.2 kg

DRUGS (11)
  1. ZYPREXA [Suspect]
     Indication: SCHIZOPHRENIA
     Dosage: 10 MG, 10 MG, 10 MG, 20 MG, 20 MG, 15 MG, 15 MG
     Dates: start: 19981228, end: 20050101
  2. ZYPREXA [Suspect]
     Indication: SCHIZOPHRENIA
     Dosage: 10 MG, 10 MG, 10 MG, 20 MG, 20 MG, 15 MG, 15 MG
     Dates: start: 20040317
  3. ZYPREXA [Suspect]
     Indication: SCHIZOPHRENIA
     Dosage: 10 MG, 10 MG, 10 MG, 20 MG, 20 MG, 15 MG, 15 MG
     Dates: start: 20040819
  4. ZYPREXA [Suspect]
     Indication: SCHIZOPHRENIA
     Dosage: 10 MG, 10 MG, 10 MG, 20 MG, 20 MG, 15 MG, 15 MG
     Dates: start: 20041020
  5. ZYPREXA [Suspect]
     Indication: SCHIZOPHRENIA
     Dosage: 10 MG, 10 MG, 10 MG, 20 MG, 20 MG, 15 MG, 15 MG
     Dates: start: 20041201
  6. ZYPREXA [Suspect]
     Indication: SCHIZOPHRENIA
     Dosage: 10 MG, 10 MG, 10 MG, 20 MG, 20 MG, 15 MG, 15 MG
     Dates: start: 20041210
  7. ZYPREXA [Suspect]
     Indication: SCHIZOPHRENIA
     Dosage: 10 MG, 10 MG, 10 MG, 20 MG, 20 MG, 15 MG, 15 MG
     Dates: start: 20050712
  8. ALBUTEROL (SALBUTAMOL) INHALER [Concomitant]
  9. LOTREL (AMLODIPINE, BENAZEPRIL HYDROCHLORIDE) CAPSULE [Concomitant]
  10. ZOCOE (SIMVASTATIN) [Concomitant]
  11. HYDROCHLOROTHIAZIDE [Concomitant]

REACTIONS (7)
  - DIABETES MELLITUS NON-INSULIN-DEPENDENT [None]
  - DYSLIPIDAEMIA [None]
  - HAEMATOCRIT DECREASED [None]
  - HAEMOGLOBIN DECREASED [None]
  - HYPERLIPIDAEMIA [None]
  - IMPRISONMENT [None]
  - WEIGHT INCREASED [None]
